FAERS Safety Report 4399806-7 (Version None)
Quarter: 2004Q3

REPORT INFORMATION
  Report Type: 
  Country: None (occurrence: None)
  Receive Date: 20040714
  Receipt Date: 20040630
  Transmission Date: 20050211
  Serious: Yes (Hospitalization)
  Sender: FDA-Public Use
  Company Number: 04P-062-0265639-00

PATIENT
  Age: 33 Year
  Sex: Female
  Weight: 74 kg

DRUGS (2)
  1. HUMIRA [Suspect]
     Indication: RHEUMATOID ARTHRITIS
     Dosage: 40 MG, 1 IN 2 WK, SUBCUTANEOUS
     Route: 058
     Dates: start: 20030201, end: 20040617
  2. LEVOTHYROXINE SODIUM [Concomitant]

REACTIONS (7)
  - ABDOMINAL PAIN UPPER [None]
  - BLOOD LACTATE DEHYDROGENASE INCREASED [None]
  - EOSINOPHILIA [None]
  - MUSCULAR WEAKNESS [None]
  - PARAESTHESIA [None]
  - SWELLING FACE [None]
  - SWOLLEN TONGUE [None]
